FAERS Safety Report 11315160 (Version 3)
Quarter: 2015Q3

REPORT INFORMATION
  Report Type: Spontaneous
  Country: JP (occurrence: JP)
  Receive Date: 20150727
  Receipt Date: 20150831
  Transmission Date: 20151125
  Serious: Yes (Death)
  Sender: FDA-Public Use
  Company Number: PHJP2015JP012694

PATIENT
  Sex: Male
  Weight: 95 kg

DRUGS (8)
  1. METFORMIN [Concomitant]
     Active Substance: METFORMIN HYDROCHLORIDE
     Indication: DIABETES MELLITUS
     Dosage: 250 UNK, BID
     Route: 048
     Dates: start: 20040521
  2. ZYLORIC [Suspect]
     Active Substance: ALLOPURINOL
     Indication: HYPERURICAEMIA
     Dosage: 100 UNK, QD
     Route: 048
     Dates: start: 20061208
  3. DAONIL [Concomitant]
     Active Substance: GLYBURIDE
     Indication: DIABETES MELLITUS
     Dosage: 2.5 UNK, BID
     Route: 048
     Dates: start: 20080905
  4. MICARDIS [Suspect]
     Active Substance: TELMISARTAN
     Indication: HYPERTENSION
     Dosage: 40 UNK, QD
     Route: 048
     Dates: start: 20040521
  5. CELTECT [Concomitant]
     Active Substance: OXATOMIDE
     Indication: PRURITUS
     Dosage: 30 UNK, QD
     Route: 048
     Dates: start: 19990423
  6. BOFUTSUSHOSAN [Suspect]
     Active Substance: HERBALS
     Indication: OBESITY
     Dosage: 2.5 UNK, TID
     Route: 048
     Dates: start: 20090731
  7. LOCHOL TAB [Suspect]
     Active Substance: FLUVASTATIN SODIUM
     Indication: HYPERLIPIDAEMIA
     Dosage: 20 MG, BID
     Route: 048
     Dates: start: 19990219
  8. PIOGLITAZONE HYDROCHLORIDE. [Suspect]
     Active Substance: PIOGLITAZONE HYDROCHLORIDE
     Indication: DIABETES MELLITUS
     Dosage: 30 UNK, QD
     Route: 048
     Dates: start: 20030926

REACTIONS (2)
  - Sepsis [Fatal]
  - Interstitial lung disease [Fatal]
